FAERS Safety Report 19696891 (Version 1)
Quarter: 2021Q3

REPORT INFORMATION
  Report Type: Not Available
  Country: None (occurrence: None)
  Receive Date: 20210813
  Receipt Date: 20210813
  Transmission Date: 20211014
  Serious: No
  Sender: FDA-Public Use
  Company Number: US-AKORN-170227

PATIENT
  Age: 22 Year
  Sex: Male

DRUGS (1)
  1. MYORISAN [Suspect]
     Active Substance: ISOTRETINOIN

REACTIONS (2)
  - Mucosal disorder [Unknown]
  - Haemorrhoids [Unknown]
